FAERS Safety Report 17550242 (Version 2)
Quarter: 2020Q2

REPORT INFORMATION
  Report Type: Not Available
  Country: US (occurrence: US)
  Receive Date: 20200317
  Receipt Date: 20200401
  Transmission Date: 20200713
  Serious: No
  Sender: FDA-Public Use
  Company Number: US-NEUROCRINE BIOSCIENCES INC.-2020NBI00787

PATIENT
  Age: 33 Year
  Sex: Male

DRUGS (10)
  1. INGREZZA [Suspect]
     Active Substance: VALBENAZINE
     Indication: TARDIVE DYSKINESIA
     Route: 048
     Dates: start: 20191024, end: 2020
  2. CLOZAPINE. [Concomitant]
     Active Substance: CLOZAPINE
  3. FENOFIBRATE. [Concomitant]
     Active Substance: FENOFIBRATE
  4. LISINOPRIL. [Concomitant]
     Active Substance: LISINOPRIL
     Indication: BLOOD PRESSURE MEASUREMENT
  5. LITHIUM. [Concomitant]
     Active Substance: LITHIUM
  6. ABILIFY [Concomitant]
     Active Substance: ARIPIPRAZOLE
  7. TRADJENTA [Concomitant]
     Active Substance: LINAGLIPTIN
  8. CRESTOR [Concomitant]
     Active Substance: ROSUVASTATIN CALCIUM
     Indication: BLOOD CHOLESTEROL
  9. LAMOTRIGINE. [Concomitant]
     Active Substance: LAMOTRIGINE
  10. METFORMIN [Concomitant]
     Active Substance: METFORMIN HYDROCHLORIDE

REACTIONS (1)
  - Blood cholesterol increased [Recovering/Resolving]

NARRATIVE: CASE EVENT DATE: 20200218
